FAERS Safety Report 8505965-4 (Version None)
Quarter: 2012Q3

REPORT INFORMATION
  Report Type: 
  Country: None (occurrence: None)
  Receive Date: 20120712
  Receipt Date: 20120706
  Transmission Date: 20120928
  Serious: Yes (Other)
  Sender: FDA-Public Use
  Company Number: US-GLAXOSMITHKLINE-A0983604A

PATIENT
  Age: 53 Year
  Sex: Male

DRUGS (1)
  1. LAMICTAL [Suspect]
     Indication: BIPOLAR DISORDER
     Route: 048
     Dates: start: 20070101, end: 20120301

REACTIONS (20)
  - RASH MACULAR [None]
  - CONTUSION [None]
  - OEDEMA PERIPHERAL [None]
  - VASODILATATION [None]
  - ANOSMIA [None]
  - DYSPHONIA [None]
  - HYPOAESTHESIA [None]
  - AMNESIA [None]
  - DRY SKIN [None]
  - AGEUSIA [None]
  - CONFUSIONAL STATE [None]
  - SKIN DISORDER [None]
  - APHONIA [None]
  - VARICOSE VEIN [None]
  - SKIN EXFOLIATION [None]
  - NAIL DISORDER [None]
  - MUSCLE DISORDER [None]
  - MUSCLE RUPTURE [None]
  - ONYCHOMADESIS [None]
  - ALOPECIA [None]
